FAERS Safety Report 23837826 (Version 1)
Quarter: 2024Q2

REPORT INFORMATION
  Report Type: Spontaneous
  Country: US (occurrence: US)
  Receive Date: 20240509
  Receipt Date: 20240509
  Transmission Date: 20240716
  Serious: No
  Sender: FDA-Public Use
  Company Number: US-SA-SAC20240503000228

PATIENT
  Age: 43 Year
  Sex: Female

DRUGS (2)
  1. DUPIXENT [Suspect]
     Active Substance: DUPILUMAB
     Indication: Nasal polyps
     Dosage: 300 MG, QOW
     Route: 058
     Dates: start: 202404
  2. CAFFEINE [Concomitant]
     Active Substance: CAFFEINE

REACTIONS (4)
  - Lymphadenopathy [Recovering/Resolving]
  - Condition aggravated [Recovering/Resolving]
  - Hyperhidrosis [Unknown]
  - Feeling hot [Unknown]

NARRATIVE: CASE EVENT DATE: 20240401
